FAERS Safety Report 4977651-9 (Version None)
Quarter: 2006Q2

REPORT INFORMATION
  Report Type: 
  Country: None (occurrence: None)
  Receive Date: 20060420
  Receipt Date: 20051227
  Transmission Date: 20061013
  Serious: No
  Sender: FDA-Public Use
  Company Number: US-GLAXOSMITHKLINE-A0587022A

PATIENT
  Age: 66 Year
  Sex: Female

DRUGS (2)
  1. ESKALITH [Suspect]
     Dosage: 600MG AT NIGHT
     Route: 048
     Dates: start: 20010101
  2. CONCURRENT MEDICATIONS [Concomitant]

REACTIONS (1)
  - DRUG INEFFECTIVE [None]
